APPROVED DRUG PRODUCT: DURABOLIN
Active Ingredient: NANDROLONE PHENPROPIONATE
Strength: 25MG/ML
Dosage Form/Route: INJECTABLE;INJECTION
Application: N011891 | Product #001
Applicant: ORGANON USA INC
Approved: Approved Prior to Jan 1, 1982 | RLD: No | RS: No | Type: DISCN